FAERS Safety Report 8225675-0 (Version None)
Quarter: 2012Q1

REPORT INFORMATION
  Report Type: 
  Country: None (occurrence: None)
  Receive Date: 20120321
  Receipt Date: 20120312
  Transmission Date: 20120608
  Serious: Yes (Other)
  Sender: FDA-Public Use
  Company Number: US-ELI_LILLY_AND_COMPANY-US201203003521

PATIENT
  Age: 81 Year
  Sex: Male

DRUGS (3)
  1. FORTEO [Suspect]
     Dosage: 20 UG, UNK
  2. FORTEO [Suspect]
     Dosage: 20 UG, UNK
  3. ANAESTHETICS [Concomitant]

REACTIONS (2)
  - SPINAL FRACTURE [None]
  - CONDITION AGGRAVATED [None]
